FAERS Safety Report 7688255-1 (Version None)
Quarter: 2011Q3

REPORT INFORMATION
  Report Type: 
  Country: None (occurrence: None)
  Receive Date: 20110817
  Receipt Date: 20110804
  Transmission Date: 20111222
  Serious: Yes (Other)
  Sender: FDA-Public Use
  Company Number: JP-SANOFI-AVENTIS-A01200909537

PATIENT
  Age: 35 Year
  Sex: Female
  Weight: 50 kg

DRUGS (8)
  1. LEUCOVORIN CALCIUM [Suspect]
     Indication: COLON CANCER
     Route: 041
     Dates: start: 20080716, end: 20080717
  2. PHENYTOIN [Concomitant]
     Indication: CLONIC CONVULSION
     Route: 048
     Dates: start: 20080727
  3. PHENOBARBITAL TAB [Concomitant]
     Indication: CLONIC CONVULSION
     Route: 048
     Dates: start: 20080727
  4. FLUOROURACIL [Suspect]
     Indication: COLON CANCER
     Dosage: DOSE TEXT: INTRAVENOUS BOLUS FOLLOWED BY CONTINUOUS DRIP
     Route: 040
     Dates: start: 20080716, end: 20080717
  5. DIAZEPAM [Concomitant]
     Indication: CLONIC CONVULSION
     Route: 048
     Dates: start: 20080727
  6. OXALIPLATIN [Suspect]
     Indication: COLON CANCER
     Route: 041
     Dates: start: 20080716, end: 20080716
  7. FLUOROURACIL [Suspect]
     Dosage: DOSE TEXT: INTRAVENOUS BOLUS FOLLOWED BY CONTINUOUS DRIP
     Route: 040
     Dates: start: 20080716, end: 20080717
  8. NICARDIPINE HYDROCHLORIDE [Concomitant]
     Route: 041
     Dates: start: 20080728

REACTIONS (1)
  - POSTERIOR REVERSIBLE ENCEPHALOPATHY SYNDROME [None]
